FAERS Safety Report 6909287-4 (Version None)
Quarter: 2010Q3

REPORT INFORMATION
  Report Type: 
  Country: None (occurrence: None)
  Receive Date: 20100805
  Receipt Date: 20100726
  Transmission Date: 20110219
  Serious: Yes (Hospitalization, Other)
  Sender: FDA-Public Use
  Company Number: PHHY2010FR49871

PATIENT
  Sex: Male

DRUGS (10)
  1. EXELON [Suspect]
     Dosage: 4.6 MG, QD
     Route: 062
     Dates: start: 20100406, end: 20100506
  2. EXELON [Suspect]
     Dosage: 9.5 MG, QD
     Route: 062
     Dates: start: 20100506, end: 20100526
  3. LASIX [Concomitant]
     Dosage: 10 MG, BID
     Route: 048
  4. ATACAND [Concomitant]
     Dosage: 2 MG, BID
     Route: 048
  5. PLAVIX [Concomitant]
     Dosage: 75 MG, Q96H
     Route: 048
  6. MOLSIDOMINE [Concomitant]
     Dosage: 1 MG, TID (PER OS)
  7. MODOPAR [Concomitant]
     Dosage: 1 DF, TID
  8. FORADIL [Concomitant]
     Dosage: 2 DF, QD
  9. SERETIDE [Concomitant]
     Dosage: 1 PUFF TWICE PER DAY
  10. XATRAL                                  /FRA/ [Concomitant]
     Dosage: 10 MG, QD
     Dates: end: 20100511

REACTIONS (9)
  - ABDOMINAL DISTENSION [None]
  - ASTHENIA [None]
  - DECREASED APPETITE [None]
  - MALAISE [None]
  - NAUSEA [None]
  - ORTHOSTATIC HYPOTENSION [None]
  - PALLOR [None]
  - VOMITING [None]
  - WEIGHT DECREASED [None]
